FAERS Safety Report 5883195-2 (Version None)
Quarter: 2008Q3

REPORT INFORMATION
  Report Type: 
  Country: None (occurrence: None)
  Receive Date: 20080915
  Receipt Date: 20080904
  Transmission Date: 20090109
  Serious: Yes (Hospitalization)
  Sender: FDA-Public Use
  Company Number: PHHO2008US10969

PATIENT
  Sex: Male
  Weight: 81 kg

DRUGS (2)
  1. ZOMETA [Suspect]
     Dosage: UNK
     Route: 042
     Dates: start: 20070201
  2. DEXAMETHASONE [Suspect]
     Indication: MULTIPLE MYELOMA
     Dosage: 40MG D1-4+15-18, Q28D
     Route: 048
     Dates: start: 20050323, end: 20070428

REACTIONS (2)
  - ORAL INFECTION [None]
  - OSTEONECROSIS [None]
